FAERS Safety Report 7364311-2 (Version None)
Quarter: 2011Q1

REPORT INFORMATION
  Report Type: 
  Country: None (occurrence: None)
  Receive Date: 20110321
  Receipt Date: 20110310
  Transmission Date: 20110831
  Serious: Yes (Death)
  Sender: FDA-Public Use
  Company Number: B0706933A

PATIENT

DRUGS (1)
  1. ZANAMIVIR [Suspect]
     Route: 042
     Dates: start: 20110121

REACTIONS (1)
  - DEATH [None]
